FAERS Safety Report 7335139-4 (Version None)
Quarter: 2011Q1

REPORT INFORMATION
  Report Type: 
  Country: None (occurrence: None)
  Receive Date: 20110307
  Receipt Date: 20110301
  Transmission Date: 20110831
  Serious: Yes (Hospitalization)
  Sender: FDA-Public Use
  Company Number: US-JNJFOC-20110101878

PATIENT
  Sex: Male

DRUGS (3)
  1. LEVAQUIN [Suspect]
     Indication: PHARYNGITIS
     Route: 048
  2. LEVAQUIN [Suspect]
     Indication: EAR INFECTION
     Route: 048
  3. STEROIDS NOS [Suspect]
     Indication: PRODUCT USED FOR UNKNOWN INDICATION
     Route: 065

REACTIONS (4)
  - JOINT EFFUSION [None]
  - EPICONDYLITIS [None]
  - ROTATOR CUFF SYNDROME [None]
  - TENDONITIS [None]
